FAERS Safety Report 10613444 (Version 2)
Quarter: 2014Q4

REPORT INFORMATION
  Report Type: Spontaneous
  Country: FR (occurrence: FR)
  Receive Date: 20141128
  Receipt Date: 20141128
  Transmission Date: 20150529
  Serious: Yes (Hospitalization)
  Sender: FDA-Public Use
  Company Number: FR-JNJFOC-20141001209

PATIENT
  Age: 73 Year
  Sex: Female

DRUGS (12)
  1. LYRICA [Interacting]
     Active Substance: PREGABALIN
     Indication: PAIN
     Dosage: 3 PER 1 DAY
     Route: 048
     Dates: end: 201408
  2. AMLOR [Concomitant]
     Active Substance: AMLODIPINE BESYLATE
     Indication: PRODUCT USED FOR UNKNOWN INDICATION
  3. ACTISKENAN [Interacting]
     Active Substance: MORPHINE SULFATE
     Indication: PAIN
     Dosage: 1 PER 6 HR
     Route: 048
     Dates: end: 201408
  4. PARACETAMOL [Concomitant]
     Active Substance: ACETAMINOPHEN
     Indication: PAIN
  5. MORPHINE [Interacting]
     Active Substance: MORPHINE
     Indication: PAIN
     Route: 065
     Dates: start: 20140801
  6. CARDENSIEL [Concomitant]
     Active Substance: BISOPROLOL FUMARATE
     Indication: PRODUCT USED FOR UNKNOWN INDICATION
  7. INEXIUM [Concomitant]
     Active Substance: ESOMEPRAZOLE
     Indication: PRODUCT USED FOR UNKNOWN INDICATION
  8. JANUVIA [Concomitant]
     Active Substance: SITAGLIPTIN PHOSPHATE
     Indication: PRODUCT USED FOR UNKNOWN INDICATION
  9. TOPALGIC [Suspect]
     Active Substance: TRAMADOL
     Indication: PAIN
     Dosage: 1 PER 6 HOUR
     Route: 048
  10. LEVOTHYROX [Concomitant]
     Active Substance: LEVOTHYROXINE
     Indication: PRODUCT USED FOR UNKNOWN INDICATION
  11. PROCORALAN [Concomitant]
     Active Substance: IVABRADINE
     Indication: PRODUCT USED FOR UNKNOWN INDICATION
  12. TAHOR [Concomitant]
     Active Substance: ATORVASTATIN CALCIUM
     Indication: PRODUCT USED FOR UNKNOWN INDICATION

REACTIONS (5)
  - Potentiating drug interaction [Recovered/Resolved]
  - Humerus fracture [Recovered/Resolved]
  - Fall [Recovered/Resolved]
  - Drug interaction [Recovered/Resolved]
  - Vertigo [Recovered/Resolved]

NARRATIVE: CASE EVENT DATE: 20140801
